FAERS Safety Report 21110754 (Version 1)
Quarter: 2022Q3

REPORT INFORMATION
  Report Type: Spontaneous
  Country: US (occurrence: None)
  Receive Date: 20220720
  Receipt Date: 20220720
  Transmission Date: 20221026
  Serious: No
  Sender: FDA-Public Use
  Company Number: None

PATIENT
  Age: 61 Year
  Sex: Female
  Weight: 40.95 kg

DRUGS (1)
  1. GAMMAGARD [Suspect]
     Active Substance: HUMAN IMMUNOGLOBULIN G
     Indication: Immunodeficiency common variable
     Dosage: OTHER QUANTITY : 25 INJECTION(S);?OTHER FREQUENCY : EVERY 3-4 DAYS;?
     Route: 058

REACTIONS (3)
  - Product dispensing error [None]
  - Expired product administered [None]
  - Liquid product physical issue [None]

NARRATIVE: CASE EVENT DATE: 20220718
